FAERS Safety Report 5457581-9 (Version None)
Quarter: 2007Q3

REPORT INFORMATION
  Report Type: 
  Country: None (occurrence: None)
  Receive Date: 20070918
  Receipt Date: 20070907
  Transmission Date: 20080115
  Serious: Yes (Other)
  Sender: FDA-Public Use
  Company Number: PFIZER INC-2007075292

PATIENT
  Age: 54 Year

DRUGS (2)
  1. DEPO-MEDROL [Suspect]
     Indication: TRIGGER FINGER
     Dosage: DAILY DOSE:20MG
     Route: 061
  2. ANTIHYPERTENSIVES [Concomitant]
     Route: 048

REACTIONS (1)
  - INTRACRANIAL ANEURYSM [None]
